FAERS Safety Report 16136626 (Version 1)
Quarter: 2019Q1

REPORT INFORMATION
  Report Type: Spontaneous
  Country: US (occurrence: US)
  Receive Date: 20190329
  Receipt Date: 20190329
  Transmission Date: 20190418
  Serious: No
  Sender: FDA-Public Use
  Company Number: US-TEIKOKU PHARMA USA-TPU2019-00218

PATIENT
  Sex: Female

DRUGS (3)
  1. LYRICA [Concomitant]
     Active Substance: PREGABALIN
     Indication: ARTHRITIS
     Dosage: 1 CAPSULE A DAY
     Dates: start: 201812
  2. LIDOCAINE PATCH [Suspect]
     Active Substance: LIDOCAINE
     Indication: ARTHRITIS
     Dosage: 3 PATCHES PER DAY FOR 12 HOURS ON AND FOR 12 HOURS OFF
     Route: 061
  3. LIDOCAINE PATCH [Suspect]
     Active Substance: LIDOCAINE
     Indication: DIABETIC NEUROPATHY

REACTIONS (2)
  - Product availability issue [Unknown]
  - Inappropriate schedule of product administration [Unknown]
